FAERS Safety Report 5043938-7 (Version None)
Quarter: 2006Q2

REPORT INFORMATION
  Report Type: 
  Country: None (occurrence: None)
  Receive Date: 20060601
  Receipt Date: 20060403
  Transmission Date: 20061013
  Serious: No
  Sender: FDA-Public Use
  Company Number: US200604000566

PATIENT
  Age: 64 Year
  Sex: Female

DRUGS (4)
  1. CYMBALTA [Suspect]
     Indication: DEPRESSION
     Dosage: SEE IMAGE
     Dates: start: 20060301
  2. ZOLOFT [Concomitant]
  3. PAMELOR /USA/ (NORTRIPTYLINE HYDROCHLORIDE) [Concomitant]
  4. HORMONES AND RELATED AGENTS [Concomitant]

REACTIONS (4)
  - DEPRESSION [None]
  - DIFFICULTY IN WALKING [None]
  - FIBROMYALGIA [None]
  - HEADACHE [None]
